FAERS Safety Report 10014019 (Version 3)
Quarter: 2014Q4

REPORT INFORMATION
  Report Type: Spontaneous
  Country: IT (occurrence: IT)
  Receive Date: 20140317
  Receipt Date: 20141112
  Transmission Date: 20150528
  Serious: Yes (Other)
  Sender: FDA-Public Use
  Company Number: IT-ROCHE-1365939

PATIENT
  Age: 54 Year
  Sex: Female
  Weight: 72 kg

DRUGS (4)
  1. COPEGUS [Suspect]
     Active Substance: RIBAVIRIN
     Indication: ANTIVIRAL TREATMENT
     Route: 048
     Dates: start: 20130428, end: 20130604
  2. COPEGUS [Interacting]
     Active Substance: RIBAVIRIN
     Route: 048
     Dates: start: 20130604, end: 20131111
  3. PEGASYS [Interacting]
     Active Substance: PEGINTERFERON ALFA-2A
     Indication: ANTIVIRAL TREATMENT
     Route: 058
     Dates: start: 20130428, end: 20131111
  4. INCIVO [Interacting]
     Active Substance: TELAPREVIR
     Indication: ANTIVIRAL TREATMENT
     Route: 048
     Dates: start: 20130523, end: 20130806

REACTIONS (2)
  - Drug interaction [Unknown]
  - Pancytopenia [Recovered/Resolved]

NARRATIVE: CASE EVENT DATE: 20130604
